FAERS Safety Report 16262888 (Version 1)
Quarter: 2019Q2

REPORT INFORMATION
  Report Type: Spontaneous
  Country: US (occurrence: US)
  Receive Date: 20190502
  Receipt Date: 20190502
  Transmission Date: 20190711
  Serious: No
  Sender: FDA-Public Use
  Company Number: US-CELGENEUS-USA-20190411324

PATIENT
  Sex: Female

DRUGS (2)
  1. APREMILAST [Suspect]
     Active Substance: APREMILAST
     Indication: PSORIASIS
     Route: 048
  2. APREMILAST [Suspect]
     Active Substance: APREMILAST
     Dosage: DOSE REDUCED
     Route: 048

REACTIONS (4)
  - Psoriasis [Unknown]
  - Onychomycosis [Unknown]
  - Depression [Unknown]
  - Decreased appetite [Unknown]
